FAERS Safety Report 9548972 (Version 1)
Quarter: 2013Q3

REPORT INFORMATION
  Report Type: Spontaneous
  Country: US (occurrence: US)
  Receive Date: 20130924
  Receipt Date: 20130924
  Transmission Date: 20140515
  Serious: No
  Sender: FDA-Public Use
  Company Number: US-BAYER-2013-115373

PATIENT
  Age: 47 Year
  Sex: Female
  Weight: 77.1 kg

DRUGS (2)
  1. MIDOL EXTENDED RELIEF CAPLET [Suspect]
     Indication: DYSMENORRHOEA
     Dosage: DF, UNKUNK
     Route: 048
     Dates: start: 2013, end: 2013
  2. CENTRUM [MINERALS NOS,VITAMINS NOS] [Concomitant]

REACTIONS (1)
  - Drug ineffective [None]
